FAERS Safety Report 13993110 (Version 1)
Quarter: 2017Q3

REPORT INFORMATION
  Report Type: Spontaneous
  Country: US (occurrence: US)
  Receive Date: 20170920
  Receipt Date: 20170920
  Transmission Date: 20171128
  Serious: Yes (Other)
  Sender: FDA-Public Use
  Company Number: US-ALLERGAN-1734124US

PATIENT
  Age: 69 Year
  Sex: Male

DRUGS (1)
  1. AVYCAZ [Suspect]
     Active Substance: AVIBACTAM SODIUM\CEFTAZIDIME
     Indication: CYSTIC FIBROSIS
     Dosage: 2.5 G, UNK
     Route: 042
     Dates: start: 20170804, end: 20170806

REACTIONS (6)
  - Atrial fibrillation [Recovered/Resolved]
  - Incorrect drug administration rate [Unknown]
  - Chest discomfort [Recovered/Resolved]
  - Off label use [Unknown]
  - Dizziness [Recovered/Resolved]
  - Dyspnoea [Recovered/Resolved]

NARRATIVE: CASE EVENT DATE: 201708
